FAERS Safety Report 7200129-9 (Version None)
Quarter: 2010Q4

REPORT INFORMATION
  Report Type: 
  Country: None (occurrence: None)
  Receive Date: 20101228
  Receipt Date: 20101216
  Transmission Date: 20110411
  Serious: Yes (Hospitalization)
  Sender: FDA-Public Use
  Company Number: FR-B.I. PHARMACEUTICALS,INC./RIDGEFIELD-2010-DE-07173BY

PATIENT
  Sex: Female

DRUGS (7)
  1. TELMISARTAN [Suspect]
     Indication: HYPERTENSION
     Dosage: 80 MG
     Route: 048
     Dates: end: 20101102
  2. INDAPAMIDE [Suspect]
     Indication: HYPERTENSION
     Route: 048
     Dates: end: 20101106
  3. TEMESTA [Concomitant]
  4. OROCAL D (3) [Concomitant]
  5. STILNOX [Concomitant]
  6. EVISTA [Concomitant]
  7. PLAVIX [Concomitant]

REACTIONS (7)
  - FALL [None]
  - HEAD INJURY [None]
  - HYPERTENSION [None]
  - HYPONATRAEMIA [None]
  - HYPOTENSION [None]
  - SUBDURAL HAEMATOMA [None]
  - SYNCOPE [None]
